FAERS Safety Report 19740402 (Version 6)
Quarter: 2022Q1

REPORT INFORMATION
  Report Type: Report from Study
  Country: BR (occurrence: BR)
  Receive Date: 20210824
  Receipt Date: 20220218
  Transmission Date: 20220423
  Serious: Yes (Hospitalization)
  Sender: FDA-Public Use
  Company Number: BR-009507513-2103BRA004967

PATIENT
  Age: 74 Year
  Sex: Female
  Weight: 56.4 kg

DRUGS (18)
  1. PEMBROLIZUMAB [Suspect]
     Active Substance: PEMBROLIZUMAB
     Indication: Non-small cell lung cancer stage IV
     Dosage: 200 MILLIGRAM, Q3W
     Route: 042
     Dates: start: 20210203, end: 20210203
  2. PEMBROLIZUMAB [Suspect]
     Active Substance: PEMBROLIZUMAB
     Indication: Lung squamous cell carcinoma stage IV
     Dosage: 200 MILLIGRAM, Q3W
     Route: 042
     Dates: start: 20210224, end: 20210224
  3. ABRAXANE [Suspect]
     Active Substance: PACLITAXEL
     Indication: Non-small cell lung cancer stage IV
     Dosage: 100 MILLIGRAM/SQ. METER, ON DAYS 1, 8 AND 15 Q3W
     Route: 042
     Dates: start: 20210203, end: 20210224
  4. ABRAXANE [Suspect]
     Active Substance: PACLITAXEL
     Indication: Lung squamous cell carcinoma stage IV
     Dosage: 100 MILLIGRAM/SQ. METER, ON DAYS 1, 8 AND 15 Q3W
     Route: 042
     Dates: start: 20210303, end: 20210303
  5. ABRAXANE [Suspect]
     Active Substance: PACLITAXEL
     Dosage: 100 MILLIGRAM/SQ. METER, ON DAYS 1, 8 AND 15 Q3W
     Route: 042
     Dates: start: 20210325, end: 20210513
  6. CARBOPLATIN [Suspect]
     Active Substance: CARBOPLATIN
     Indication: Non-small cell lung cancer stage IV
     Dosage: AUC (AREA UNDER THE CURVE) OF 6 MG/ML/MIN, Q3W
     Route: 042
     Dates: start: 20210203, end: 20210203
  7. CARBOPLATIN [Suspect]
     Active Substance: CARBOPLATIN
     Indication: Lung squamous cell carcinoma stage IV
     Dosage: AUC (AREA UNDER THE CURVE) OF 6 MG/ML/MIN, Q3W
     Route: 042
     Dates: start: 20210224, end: 20210224
  8. CARBOPLATIN [Suspect]
     Active Substance: CARBOPLATIN
     Dosage: AUC (AREA UNDER THE CURVE) OF 6 MG/ML/MIN, Q3W
     Route: 042
     Dates: start: 20210325, end: 20210429
  9. GABAPENTIN [Concomitant]
     Active Substance: GABAPENTIN
     Indication: Myalgia
     Dosage: 300 MILLIGRAM, QD
     Route: 048
     Dates: start: 20210127, end: 20210513
  10. RANITIDINE [Concomitant]
     Active Substance: RANITIDINE
     Indication: Prophylaxis
     Dosage: 150 MILLIGRAM, BID
     Route: 048
     Dates: start: 20210127
  11. LAMOTRIGINE [Concomitant]
     Active Substance: LAMOTRIGINE
     Indication: Epilepsy
     Dosage: 50 MILLIGRAM, BID
     Route: 048
     Dates: start: 20210211
  12. FOLIC ACID [Concomitant]
     Active Substance: FOLIC ACID
     Indication: Anaemia
     Dosage: 5 MILLIGRAM, QD
     Route: 048
     Dates: start: 20210211, end: 20210330
  13. FERROUS SULFATE [Concomitant]
     Active Substance: FERROUS SULFATE
     Indication: Anaemia
     Dosage: 40 MILLIGRAM, TID
     Route: 048
     Dates: start: 20210211, end: 20210330
  14. CODEINE [Concomitant]
     Active Substance: CODEINE
     Indication: Myalgia
     Dosage: 30 MILLIGRAM, TID
     Route: 048
     Dates: start: 20210218, end: 20210513
  15. AKYNZEO [Concomitant]
     Active Substance: NETUPITANT\PALONOSETRON HYDROCHLORIDE
     Indication: Chemotherapy side effect prophylaxis
     Dosage: 1 CAPSULE, ONCE
     Route: 048
     Dates: start: 20210303, end: 20210303
  16. DEXAMETHASONE [Concomitant]
     Active Substance: DEXAMETHASONE
     Indication: Chemotherapy side effect prophylaxis
     Dosage: 10 MILLIGRAM, ONCE
     Route: 042
     Dates: start: 20210303, end: 20210303
  17. BROMOPRIDE [Concomitant]
     Active Substance: BROMOPRIDE
     Indication: Prophylaxis
     Dosage: 10 MILLIGRAM, TID
     Route: 048
     Dates: start: 20210305, end: 20210328
  18. SIMETHICONE (DIMETHICONE) [Concomitant]
     Active Substance: DIMETHICONE
     Indication: Flatulence
     Dosage: 40 MILLIGRAM, BID
     Route: 048
     Dates: start: 20210225, end: 20210322

REACTIONS (1)
  - Hepatitis [Recovered/Resolved]

NARRATIVE: CASE EVENT DATE: 20210315
